FAERS Safety Report 7941580-9 (Version None)
Quarter: 2011Q4

REPORT INFORMATION
  Report Type: 
  Country: None (occurrence: None)
  Receive Date: 20111128
  Receipt Date: 20111123
  Transmission Date: 20120403
  Serious: No
  Sender: FDA-Public Use
  Company Number: IT-SANOFI-AVENTIS-2011SA076806

PATIENT
  Age: 43 Year
  Sex: Female

DRUGS (1)
  1. ARAVA [Suspect]
     Indication: EXPOSURE VIA FATHER
     Route: 064

REACTIONS (1)
  - EXPOSURE VIA FATHER [None]
